FAERS Safety Report 7401724-4 (Version None)
Quarter: 2011Q1

REPORT INFORMATION
  Report Type: 
  Country: None (occurrence: None)
  Receive Date: 20110329
  Receipt Date: 20110317
  Transmission Date: 20110831
  Serious: Yes (Hospitalization, Other)
  Sender: FDA-Public Use
  Company Number: 2011MA002801

PATIENT
  Age: 46 Year
  Sex: Female

DRUGS (3)
  1. TRAMADOL HYDROCHLORIDE [Suspect]
     Indication: PROCEDURAL PAIN
     Dosage: 200 MG;IV
     Route: 042
     Dates: start: 20100205, end: 20100205
  2. TRAMADOL HCL [Concomitant]
  3. ANAESTHETICS (ANAESTHETICS) [Suspect]
     Indication: STERILISATION
     Dates: start: 20100205

REACTIONS (2)
  - POTENTIATING DRUG INTERACTION [None]
  - COMA [None]
